FAERS Safety Report 7880559-2 (Version None)
Quarter: 2011Q4

REPORT INFORMATION
  Report Type: 
  Country: None (occurrence: None)
  Receive Date: 20111101
  Receipt Date: 20111024
  Transmission Date: 20120403
  Serious: Yes (Other)
  Sender: FDA-Public Use
  Company Number: US-PFIZER INC-2011260604

PATIENT
  Sex: Male

DRUGS (2)
  1. SKELAXIN [Suspect]
  2. SOMA [Suspect]

REACTIONS (2)
  - BRAIN INJURY [None]
  - SEDATION [None]
